FAERS Safety Report 6612149-3 (Version None)
Quarter: 2010Q1

REPORT INFORMATION
  Report Type: 
  Country: None (occurrence: None)
  Receive Date: 20100302
  Receipt Date: 20100302
  Transmission Date: 20100710
  Serious: Yes (Other)
  Sender: FDA-Public Use
  Company Number: None

PATIENT
  Age: 43 Year
  Sex: Female
  Weight: 49.8957 kg

DRUGS (4)
  1. REGLAN [Suspect]
     Indication: MIGRAINE
     Dosage: ONE TIME IV ADMINISTRATION
     Dates: start: 20090319, end: 20090319
  2. REGLAN [Suspect]
     Indication: NAUSEA
     Dosage: ONE TIME IV ADMINISTRATION
     Dates: start: 20090319, end: 20090319
  3. REGLAN [Suspect]
     Indication: VOMITING
     Dosage: ONE TIME IV ADMINISTRATION
     Dates: start: 20090319, end: 20090319
  4. BENADRYL [Suspect]

REACTIONS (2)
  - CARDIAC DISORDER [None]
  - TACHYCARDIA [None]
